FAERS Safety Report 6636515-5 (Version None)
Quarter: 2010Q1

REPORT INFORMATION
  Report Type: 
  Country: None (occurrence: None)
  Receive Date: 20100310
  Receipt Date: 20100222
  Transmission Date: 20100710
  Serious: Yes (Other)
  Sender: FDA-Public Use
  Company Number: 2009BI041910

PATIENT
  Age: 71 Year
  Sex: Male

DRUGS (16)
  1. ZEVALIN [Suspect]
     Indication: MANTLE CELL LYMPHOMA STAGE IV
     Dosage: 863 MBQ;1X;IV
     Route: 042
     Dates: start: 20091007, end: 20091014
  2. RITUXIMAB [Concomitant]
  3. ASPIRIN [Concomitant]
  4. . [Concomitant]
  5. IBRUPROFEN [Concomitant]
  6. POLARAMINE [Concomitant]
  7. RITUXIMAB (GENETICAL RECOMBINATION) [Concomitant]
  8. DIOVAN [Concomitant]
  9. CALSLOT [Concomitant]
  10. BAKTAR [Concomitant]
  11. OMEPRAL [Concomitant]
  12. MITOXANTRONE HYDROCHLORIDE [Concomitant]
  13. ETOPOSIDE [Concomitant]
  14. CARBOPLATIN [Concomitant]
  15. DEXAMETHASONE [Concomitant]
  16. FLUDEOXYGLUCOSE [Concomitant]

REACTIONS (2)
  - BONE MARROW FAILURE [None]
  - HEPATIC FUNCTION ABNORMAL [None]
